FAERS Safety Report 15947564 (Version 2)
Quarter: 2019Q1

REPORT INFORMATION
  Report Type: Spontaneous
  Country: LS (occurrence: LS)
  Receive Date: 20190211
  Receipt Date: 20190227
  Transmission Date: 20190417
  Serious: Yes (Death, Hospitalization, Other)
  Sender: FDA-Public Use
  Company Number: LS-BAYER-2019-025145

PATIENT
  Age: 38 Year
  Sex: Male
  Weight: 56 kg

DRUGS (19)
  1. MOXIFLOXACIN ORAL [Suspect]
     Active Substance: MOXIFLOXACIN
     Indication: TUBERCULOSIS
     Dosage: UNK
     Dates: end: 20190115
  2. CYCLOSERINE. [Suspect]
     Active Substance: CYCLOSERINE
     Indication: TUBERCULOSIS
     Dosage: UNK
     Dates: end: 20190115
  3. COTRIMOXAZOL [Concomitant]
     Active Substance: SULFAMETHOXAZOLE\TRIMETHOPRIM
     Indication: TUBERCULOSIS
  4. TDF [Concomitant]
     Active Substance: DILOXANIDE FUROATE\TINIDAZOLE
     Dosage: UNK
     Dates: start: 20180423, end: 20180822
  5. EFAVIRENZ. [Concomitant]
     Active Substance: EFAVIRENZ
     Indication: HIV INFECTION
     Dosage: UNK
     Dates: start: 20180423, end: 20180822
  6. PYRIDOXINE [Concomitant]
     Active Substance: PYRIDOXINE
     Indication: TUBERCULOSIS
     Dosage: UNK
     Dates: start: 20180409, end: 20180822
  7. MOXIFLOXACIN ORAL [Suspect]
     Active Substance: MOXIFLOXACIN
     Indication: TUBERCULOSIS
     Dosage: 400 MG, QD
     Route: 048
     Dates: start: 20180409, end: 20180822
  8. DELAMANID [Suspect]
     Active Substance: DELAMANID
     Indication: TUBERCULOSIS
     Dosage: 200 MG, QD
     Route: 048
     Dates: start: 20180409, end: 20180822
  9. LINEZOLID. [Suspect]
     Active Substance: LINEZOLID
     Indication: TUBERCULOSIS
     Dosage: 600 MG, QD
     Route: 048
     Dates: start: 20180905, end: 20190115
  10. LEVOFLOXACIN. [Suspect]
     Active Substance: LEVOFLOXACIN
     Indication: TUBERCULOSIS
     Dosage: UNK
     Dates: start: 20180409, end: 20180822
  11. CYCLOSERINE. [Suspect]
     Active Substance: CYCLOSERINE
     Indication: TUBERCULOSIS
     Dosage: 750 MG, QD
     Route: 048
     Dates: start: 20180409, end: 20180822
  12. DELAMANID [Suspect]
     Active Substance: DELAMANID
     Indication: TUBERCULOSIS
     Dosage: UNK
     Dates: end: 20190115
  13. CLOFAZIMINE [Suspect]
     Active Substance: CLOFAZIMINE
     Indication: TUBERCULOSIS
     Dosage: 100 MG, QD
     Route: 048
     Dates: start: 20180409, end: 20180822
  14. DAPSONE. [Concomitant]
     Active Substance: DAPSONE
     Dosage: UNK
     Dates: start: 20180912
  15. AMINOSALICYLIC ACID [Suspect]
     Active Substance: AMINOSALICYLIC ACID
     Indication: TUBERCULOSIS
     Dosage: 8000 MG, QD
     Route: 048
     Dates: start: 20180409, end: 20180822
  16. CLOFAZIMINE [Suspect]
     Active Substance: CLOFAZIMINE
     Indication: TUBERCULOSIS
     Dosage: UNK
     Dates: end: 20190115
  17. 3TC [Concomitant]
     Active Substance: LAMIVUDINE
     Dosage: UNK
     Dates: start: 20180423, end: 20180822
  18. PROTIONAMIDE [Suspect]
     Active Substance: PROTIONAMIDE
     Indication: TUBERCULOSIS
     Dosage: 750 MG, QD
     Route: 048
     Dates: start: 20180409, end: 20180822
  19. COTRIMOXAZOL [Concomitant]
     Active Substance: SULFAMETHOXAZOLE\TRIMETHOPRIM
     Indication: HIV INFECTION
     Dosage: UNK
     Dates: start: 20180316, end: 20180822

REACTIONS (10)
  - Meningitis [Fatal]
  - Hepatic failure [Unknown]
  - Sepsis [Unknown]
  - Hepatic enzyme increased [Recovered/Resolved]
  - Altered state of consciousness [Fatal]
  - Musculoskeletal stiffness [Fatal]
  - Pyrexia [Fatal]
  - Off label use [None]
  - Renal failure [Unknown]
  - Product use in unapproved indication [None]

NARRATIVE: CASE EVENT DATE: 20180627
